FAERS Safety Report 20322873 (Version 1)
Quarter: 2022Q1

REPORT INFORMATION
  Report Type: Spontaneous
  Country: CI (occurrence: CI)
  Receive Date: 20220111
  Receipt Date: 20220111
  Transmission Date: 20220423
  Serious: Yes (Other)
  Sender: FDA-Public Use
  Company Number: CI-CASPER PHARMA LLC-2021CAS000715

PATIENT
  Age: 4 Year
  Sex: Male

DRUGS (1)
  1. PENICILLIN G BENZATHINE [Suspect]
     Active Substance: PENICILLIN G BENZATHINE
     Indication: Rash pruritic
     Route: 030

REACTIONS (2)
  - Embolia cutis medicamentosa [Not Recovered/Not Resolved]
  - Product use in unapproved indication [Unknown]
